FAERS Safety Report 7528457-8 (Version None)
Quarter: 2011Q2

REPORT INFORMATION
  Report Type: 
  Country: None (occurrence: None)
  Receive Date: 20110607
  Receipt Date: 20110111
  Transmission Date: 20111010
  Serious: No
  Sender: FDA-Public Use
  Company Number: US-ASTRAZENECA-2011SE03269

PATIENT

DRUGS (3)
  1. ANTIHYPERTENSIVES [Concomitant]
     Dosage: UNKNOWN.
  2. VITAMIN C /00008001/ [Concomitant]
     Dosage: UNKNOWN.
  3. PRILOSEC OTC [Suspect]
     Route: 048
     Dates: start: 20110107

REACTIONS (3)
  - GASTROINTESTINAL DISORDER [None]
  - DRUG INEFFECTIVE [None]
  - HYPERCHLORHYDRIA [None]
